FAERS Safety Report 6485110-X (Version None)
Quarter: 2009Q4

REPORT INFORMATION
  Report Type: 
  Country: None (occurrence: None)
  Receive Date: 20091209
  Receipt Date: 20091201
  Transmission Date: 20100525
  Serious: Yes (Other)
  Sender: FDA-Public Use
  Company Number: US-ASTRAZENECA-2009SE29747

PATIENT
  Sex: Female

DRUGS (3)
  1. METOPROLOL SUCCINATE [Suspect]
     Route: 048
  2. METOPROLOL SUCCINATE [Suspect]
     Route: 048
  3. SOTALOL HCL [Suspect]
     Dates: end: 20091112

REACTIONS (5)
  - ADRENALECTOMY [None]
  - DERMATITIS ALLERGIC [None]
  - DISORIENTATION [None]
  - DIZZINESS [None]
  - TACHYARRHYTHMIA [None]
